FAERS Safety Report 7853293-2 (Version None)
Quarter: 2011Q3

REPORT INFORMATION
  Report Type: 
  Country: None (occurrence: None)
  Receive Date: 20110915
  Receipt Date: 20110227
  Transmission Date: 20111222
  Serious: Yes (Hospitalization, Other)
  Sender: FDA-Public Use
  Company Number: 2011027641

PATIENT
  Sex: Female
  Weight: 62 kg

DRUGS (5)
  1. PRIVIGEN [Suspect]
  2. PRIVIGEN [Suspect]
     Indication: MYASTHENIA GRAVIS
     Dosage: SEE IMAGE
     Route: 042
     Dates: start: 20110212, end: 20110212
  3. PRIVIGEN [Suspect]
     Indication: MYASTHENIA GRAVIS
     Dosage: SEE IMAGE
     Route: 042
     Dates: start: 20110213, end: 20110213
  4. PYRIDOSTIGMINE (PYRIDOSTIGMINE) [Concomitant]
  5. PREDNISONE TAB [Concomitant]

REACTIONS (5)
  - HAEMOGLOBIN DECREASED [None]
  - HAEMATURIA [None]
  - FATIGUE [None]
  - ANAEMIA [None]
  - INTRAVASCULAR HAEMOLYSIS [None]
